FAERS Safety Report 21547633 (Version 3)
Quarter: 2022Q4

REPORT INFORMATION
  Report Type: Report from Study
  Country: IE (occurrence: IE)
  Receive Date: 20221103
  Receipt Date: 20221208
  Transmission Date: 20230113
  Serious: Yes (Hospitalization)
  Sender: FDA-Public Use
  Company Number: IE-REGENERON PHARMACEUTICALS, INC.-2022-137341

PATIENT
  Age: 76 Year
  Sex: Female

DRUGS (9)
  1. FIANLIMAB [Suspect]
     Active Substance: FIANLIMAB
     Indication: Malignant melanoma
     Dosage: 1600 MG, Q3W
     Route: 042
     Dates: start: 20220225, end: 20221005
  2. CEMIPLIMAB [Suspect]
     Active Substance: CEMIPLIMAB
     Indication: Malignant melanoma
     Dosage: 350 MG, Q3W
     Route: 042
     Dates: start: 20220225, end: 20221005
  3. LEVOTHYROXINE [Concomitant]
     Active Substance: LEVOTHYROXINE
     Indication: Hypothyroidism
     Dosage: 100 MCG, MON-FRI
     Route: 048
     Dates: start: 200101
  4. NUPRIN [ACETYLSALICYLIC ACID] [Concomitant]
     Indication: Cardiovascular event prophylaxis
     Dosage: 75 MG, QD
     Route: 048
     Dates: start: 201411
  5. SYMBICORT [Concomitant]
     Active Substance: BUDESONIDE\FORMOTEROL FUMARATE DIHYDRATE
     Indication: Respiratory disorder
     Dosage: 200 MCG
     Route: 048
     Dates: start: 202112
  6. BETNOVATE [Concomitant]
     Active Substance: BETAMETHASONE
     Indication: Rash maculo-papular
     Dosage: 1 UNIT, QD
     Route: 061
     Dates: start: 20220411
  7. FEXOFENADINE [Concomitant]
     Active Substance: FEXOFENADINE HYDROCHLORIDE
     Indication: Rash maculo-papular
     Dosage: 120 MG, QD
     Route: 048
     Dates: start: 20220530
  8. SERC (BETAHISTINE HYDROCHLORIDE) [Concomitant]
     Active Substance: BETAHISTINE HYDROCHLORIDE
     Indication: Nervous system disorder
     Dosage: 16 MG, TID
     Route: 048
     Dates: start: 20220525
  9. SODIUM CHLORIDE [Concomitant]
     Active Substance: SODIUM CHLORIDE
     Indication: Hypercalcaemia
     Dosage: 1 L, STAT
     Route: 042
     Dates: start: 20221017, end: 20221017

REACTIONS (1)
  - Adrenal insufficiency [Recovered/Resolved]

NARRATIVE: CASE EVENT DATE: 20221026
